FAERS Safety Report 7604856-0 (Version None)
Quarter: 2011Q3

REPORT INFORMATION
  Report Type: 
  Country: None (occurrence: None)
  Receive Date: 20110712
  Receipt Date: 20110630
  Transmission Date: 20111222
  Serious: Yes (Hospitalization, Other)
  Sender: FDA-Public Use
  Company Number: US-RB-026819-11

PATIENT
  Age: 38 Year
  Sex: Male

DRUGS (2)
  1. SUBOXONE [Suspect]
     Route: 060
     Dates: start: 20100801
  2. SUBOXONE [Suspect]
     Indication: DRUG DEPENDENCE
     Route: 060
     Dates: end: 20110312

REACTIONS (12)
  - CEREBROVASCULAR ACCIDENT [None]
  - VISUAL ACUITY REDUCED [None]
  - STRESS [None]
  - UNDERDOSE [None]
  - PITUITARY TUMOUR [None]
  - CATARACT [None]
  - PSYCHOMOTOR HYPERACTIVITY [None]
  - ADRENAL INSUFFICIENCY [None]
  - ANXIETY [None]
  - INSOMNIA [None]
  - HYPERTENSION [None]
  - PROTEINURIA [None]
